FAERS Safety Report 5469645-4 (Version None)
Quarter: 2007Q3

REPORT INFORMATION
  Report Type: 
  Country: None (occurrence: None)
  Receive Date: 20070927
  Receipt Date: 20070926
  Transmission Date: 20080115
  Serious: Yes (Other)
  Sender: FDA-Public Use
  Company Number: A0684131A

PATIENT
  Age: 41 Year
  Sex: Female

DRUGS (3)
  1. ALLI [Suspect]
     Indication: WEIGHT LOSS DIET
     Route: 048
     Dates: start: 20070923, end: 20070925
  2. ANTIDEPRESSANT [Suspect]
     Indication: DEPRESSION
     Route: 065
  3. ANTI-PSYCHOTIC MEDICATION [Suspect]
     Indication: DRUG USE FOR UNKNOWN INDICATION
     Route: 065

REACTIONS (11)
  - AGITATION [None]
  - BIPOLAR DISORDER [None]
  - DEPRESSION [None]
  - DRUG INTERACTION [None]
  - GASTROINTESTINAL DISORDER [None]
  - HOMICIDAL IDEATION [None]
  - IRRITABILITY [None]
  - MALAISE [None]
  - MOOD ALTERED [None]
  - MOOD SWINGS [None]
  - SOMNOLENCE [None]
